FAERS Safety Report 19304282 (Version 1)
Quarter: 2021Q2

REPORT INFORMATION
  Report Type: Spontaneous
  Country: JP (occurrence: JP)
  Receive Date: 20210525
  Receipt Date: 20210525
  Transmission Date: 20210717
  Serious: Yes (Other)
  Sender: FDA-Public Use
  Company Number: JP-PFIZER INC-2019319008

PATIENT
  Age: 49 Year
  Sex: Female

DRUGS (6)
  1. MYONAL [EPERISONE HYDROCHLORIDE] [Concomitant]
     Active Substance: EPERISONE HYDROCHLORIDE
     Dosage: 50 MG, 3X/DAY
     Route: 048
     Dates: start: 20190607
  2. LYRICA [Suspect]
     Active Substance: PREGABALIN
     Dosage: TWO TABLETS AT ONCE
     Route: 048
  3. LOXONIN [Suspect]
     Active Substance: LOXOPROFEN SODIUM
     Dosage: 60 MG, 3X/DAY
     Route: 048
     Dates: start: 20190607, end: 20190613
  4. LYRICA [Suspect]
     Active Substance: PREGABALIN
     Indication: INTERVERTEBRAL DISC PROTRUSION
     Dosage: 25 MG, 2X/DAY
     Route: 048
     Dates: start: 20190608
  5. MUCOSTA [Concomitant]
     Active Substance: REBAMIPIDE
     Dosage: 100 MG, 3X/DAY
     Route: 048
     Dates: start: 20190607, end: 20190613
  6. LYRICA [Suspect]
     Active Substance: PREGABALIN
     Dosage: 25 MG, 2X/DAY
     Route: 048

REACTIONS (1)
  - Hallucination, auditory [Recovered/Resolved]

NARRATIVE: CASE EVENT DATE: 20190609
